FAERS Safety Report 7265452-0 (Version None)
Quarter: 2011Q1

REPORT INFORMATION
  Report Type: 
  Country: None (occurrence: None)
  Receive Date: 20110131
  Receipt Date: 20110118
  Transmission Date: 20110831
  Serious: Yes (Hospitalization, Other)
  Sender: FDA-Public Use
  Company Number: PHHY2011US01733

PATIENT
  Sex: Female

DRUGS (1)
  1. GILENYA [Suspect]
     Indication: MULTIPLE SCLEROSIS
     Dosage: 0.5 MG, QD
     Route: 048
     Dates: start: 20101228, end: 20110110

REACTIONS (8)
  - PNEUMONIA [None]
  - ASTHENIA [None]
  - INFLUENZA LIKE ILLNESS [None]
  - PAIN [None]
  - BODY TEMPERATURE INCREASED [None]
  - RESPIRATORY TRACT CONGESTION [None]
  - BRONCHITIS [None]
  - COUGH [None]
